FAERS Safety Report 6391363-9 (Version None)
Quarter: 2009Q4

REPORT INFORMATION
  Report Type: 
  Country: None (occurrence: None)
  Receive Date: 20091007
  Receipt Date: 20091001
  Transmission Date: 20100525
  Serious: Yes (Death, Life-Threatening, Congenital Anomaly)
  Sender: FDA-Public Use
  Company Number: PHHY2009DE42797

PATIENT
  Sex: Female
  Weight: 2.8 kg

DRUGS (2)
  1. EXFORGE [Suspect]
     Indication: HYPERTENSION
     Dosage: UNK
     Route: 064
  2. BISOHEXAL [Concomitant]
     Dosage: UNK

REACTIONS (7)
  - DRUG EXPOSURE DURING PREGNANCY [None]
  - JOINT HYPEREXTENSION [None]
  - MATERNAL DRUGS AFFECTING FOETUS [None]
  - NEONATAL ANURIA [None]
  - PULMONARY HYPOPLASIA [None]
  - RESPIRATORY FAILURE [None]
  - SKULL MALFORMATION [None]
